FAERS Safety Report 8885466 (Version 2)
Quarter: 2012Q4

REPORT INFORMATION
  Report Type: 
  Country: US (occurrence: US)
  Receive Date: 20121101
  Receipt Date: 20121107
  Transmission Date: 20130627
  Serious: Yes (Hospitalization)
  Sender: FDA-Public Use
  Company Number: US-PFIZER INC-2012269938

PATIENT
  Sex: Female

DRUGS (5)
  1. LEVOXYL [Suspect]
     Dosage: UNK
  2. LEVOTHYROXINE SODIUM [Suspect]
     Dosage: UNK
  3. PROTONIX [Suspect]
     Dosage: 40 mg, daily
  4. PANTOPRAZOLE [Suspect]
     Dosage: UNK
  5. COUMADIN [Suspect]
     Dosage: UNK
     Dates: end: 2012

REACTIONS (1)
  - Haemorrhage [Unknown]
